FAERS Safety Report 7106976-6 (Version None)
Quarter: 2010Q4

REPORT INFORMATION
  Report Type: 
  Country: None (occurrence: None)
  Receive Date: 20101116
  Receipt Date: 20100907
  Transmission Date: 20110411
  Serious: No
  Sender: FDA-Public Use
  Company Number: US-ABBOTT-10P-163-0669256-00

PATIENT
  Sex: Female

DRUGS (1)
  1. SIMCOR [Suspect]
     Indication: HYPERLIPIDAEMIA
     Dosage: 500/20  MG AT NIGHT
     Dates: start: 20100801, end: 20100905

REACTIONS (2)
  - DYSPNOEA [None]
  - WHEEZING [None]
